FAERS Safety Report 10213680 (Version 3)
Quarter: 2014Q2

REPORT INFORMATION
  Report Type: Spontaneous
  Country: FR (occurrence: FR)
  Receive Date: 20140603
  Receipt Date: 20140605
  Transmission Date: 20141212
  Serious: Yes (Hospitalization)
  Sender: FDA-Public Use
  Company Number: FR-ROCHE-1408158

PATIENT
  Age: 82 Year
  Sex: Female
  Weight: 57 kg

DRUGS (3)
  1. PERJETA [Suspect]
     Indication: BREAST CANCER METASTATIC
     Route: 042
     Dates: start: 20140430
  2. HERCEPTIN [Suspect]
     Indication: BREAST CANCER METASTATIC
     Route: 065
  3. TAXOTERE [Suspect]
     Indication: BREAST CANCER METASTATIC
     Route: 065

REACTIONS (4)
  - Haematemesis [Recovered/Resolved]
  - Melaena [Recovered/Resolved]
  - Gastric ulcer [Unknown]
  - Nausea [Unknown]
